FAERS Safety Report 19440742 (Version 1)
Quarter: 2021Q2

REPORT INFORMATION
  Report Type: Spontaneous
  Country: BR (occurrence: BR)
  Receive Date: 20210621
  Receipt Date: 20210621
  Transmission Date: 20210717
  Serious: Yes (Other)
  Sender: FDA-Public Use
  Company Number: BR-NOVOPROD-820730

PATIENT
  Age: 19 Year
  Sex: Female
  Weight: 62.7 kg

DRUGS (8)
  1. LEVOID [Concomitant]
     Active Substance: LEVOTHYROXINE
     Dosage: 112 MCG
  2. HUMALOG [Concomitant]
     Active Substance: INSULIN LISPRO
     Indication: PRODUCT USED FOR UNKNOWN INDICATION
     Dosage: 4 UI PRE?BREAKFAST, 5 UI PRE?LUNCH, 2?3 UI PRE?DINNER
     Route: 065
  3. LEVOID [Concomitant]
     Active Substance: LEVOTHYROXINE
     Indication: PRODUCT USED FOR UNKNOWN INDICATION
     Dosage: 100 MCG
  4. TRESIBA [Suspect]
     Active Substance: INSULIN DEGLUDEC
     Dosage: 22IU
     Route: 065
  5. TRESIBA [Suspect]
     Active Substance: INSULIN DEGLUDEC
     Dosage: 24IU
     Route: 065
  6. TRESIBA [Suspect]
     Active Substance: INSULIN DEGLUDEC
     Indication: DIABETES MELLITUS
     Dosage: 26IU
     Route: 065
  7. BUPROPION. [Concomitant]
     Active Substance: BUPROPION
     Indication: PRODUCT USED FOR UNKNOWN INDICATION
     Dosage: 150 MG
  8. HUMALOG [Concomitant]
     Active Substance: INSULIN LISPRO
     Dosage: 3 IU PRE?BREAKFAST, 5 UI PRE?LUNCH AND 3 UI PRE?DINNER
     Route: 065

REACTIONS (7)
  - Hypoglycaemia [Recovered/Resolved]
  - Demyelinating polyneuropathy [Unknown]
  - Spinal osteoarthritis [Unknown]
  - Blood glucose increased [Unknown]
  - Intervertebral disc disorder [Unknown]
  - Diabetic retinopathy [Unknown]
  - Trigger finger [Unknown]

NARRATIVE: CASE EVENT DATE: 201707
